FAERS Safety Report 23964782 (Version 1)
Quarter: 2024Q2

REPORT INFORMATION
  Report Type: Spontaneous
  Country: FR (occurrence: FR)
  Receive Date: 20240612
  Receipt Date: 20240612
  Transmission Date: 20240716
  Serious: Yes (Other)
  Sender: FDA-Public Use
  Company Number: None

PATIENT

DRUGS (1)
  1. TRIUMEQ [Suspect]
     Active Substance: ABACAVIR SULFATE\DOLUTEGRAVIR SODIUM\LAMIVUDINE
     Indication: HIV infection
     Dosage: 1 DF, QD (1/D)
     Route: 048
     Dates: start: 202312

REACTIONS (2)
  - Blood HIV RNA increased [Unknown]
  - Product dispensing error [Unknown]

NARRATIVE: CASE EVENT DATE: 20231201
